FAERS Safety Report 4751470-0 (Version None)
Quarter: 2005Q3

REPORT INFORMATION
  Report Type: 
  Country: None (occurrence: None)
  Receive Date: 20050824
  Receipt Date: 20050412
  Transmission Date: 20060218
  Serious: Yes (Hospitalization, Other)
  Sender: FDA-Public Use
  Company Number: US-MERCK-0504USA02074

PATIENT
  Age: 71 Year
  Sex: Female
  Weight: 53 kg

DRUGS (24)
  1. VIOXX [Suspect]
     Indication: ARTHRITIS
     Route: 048
     Dates: start: 19990101, end: 20011231
  2. VIOXX [Suspect]
     Route: 048
     Dates: end: 20040830
  3. ACIPHEX [Concomitant]
     Indication: GASTRIC DISORDER
     Route: 065
  4. LIPITOR [Concomitant]
     Indication: BLOOD CHOLESTEROL INCREASED
     Route: 065
  5. NORVASC [Concomitant]
     Indication: HYPERTENSION
     Route: 065
  6. AMOXICILLIN [Concomitant]
     Route: 048
  7. CODEINE PHOSPHATE AND PROMETHAZINE HYDROCHLORIDE [Concomitant]
     Route: 065
  8. TUSSIONEX (CHLORPHENIRAMINE POLISTIREX (+) HYDROCODONE POLISTIREX) [Concomitant]
     Route: 065
  9. QUININE SULFATE [Concomitant]
     Indication: MUSCLE SPASMS
     Route: 048
  10. PREMARIN [Concomitant]
     Indication: HORMONE REPLACEMENT THERAPY
     Route: 065
  11. FLUOCINONIDE [Concomitant]
     Route: 065
  12. CODEINE [Concomitant]
     Indication: PAIN
     Route: 065
  13. PROTOPIC [Concomitant]
     Indication: COUGH
     Route: 065
  14. CELEXA [Concomitant]
     Route: 065
  15. WELLBUTRIN [Concomitant]
     Indication: NERVOUSNESS
     Route: 048
  16. PLAVIX [Concomitant]
     Indication: ANTICOAGULANT THERAPY
     Route: 065
  17. HYDROCODONE BITARTRATE [Concomitant]
     Indication: PAIN
     Route: 065
  18. ALBUTEROL [Concomitant]
     Indication: NASOPHARYNGITIS
     Route: 055
  19. ZITHROMAX [Concomitant]
     Indication: NASOPHARYNGITIS
     Route: 065
  20. PENTOXIFYLLINE [Concomitant]
     Route: 065
  21. CILOXAN [Concomitant]
     Route: 065
  22. PREDNISONE [Concomitant]
     Indication: ASTHMA
     Route: 065
  23. ALPRAZOLAM [Concomitant]
     Route: 065
  24. LAMISIL [Concomitant]
     Route: 065

REACTIONS (29)
  - ABDOMINAL PAIN UPPER [None]
  - ANXIETY [None]
  - AORTIC ATHEROSCLEROSIS [None]
  - ARTERIAL OCCLUSIVE DISEASE [None]
  - ASTHENIA [None]
  - BURSITIS [None]
  - CARDIAC MURMUR [None]
  - CARDIOVASCULAR DISORDER [None]
  - CAROTID ARTERY STENOSIS [None]
  - CHEST PAIN [None]
  - DRUG INEFFECTIVE [None]
  - DYSPNOEA [None]
  - ESSENTIAL HYPERTENSION [None]
  - FEMORAL ARTERIAL STENOSIS [None]
  - FEMORAL ARTERY OCCLUSION [None]
  - GASTRIC DISORDER [None]
  - GASTRITIS [None]
  - GASTROOESOPHAGEAL REFLUX DISEASE [None]
  - INTERMITTENT CLAUDICATION [None]
  - MUSCLE HYPERTROPHY [None]
  - MYOCARDIAL INFARCTION [None]
  - PERIPHERAL VASCULAR DISORDER [None]
  - RENAL ARTERY STENOSIS [None]
  - SACROILIITIS [None]
  - SHOULDER PAIN [None]
  - SILENT MYOCARDIAL INFARCTION [None]
  - THROMBOSIS [None]
  - TRANSIENT ISCHAEMIC ATTACK [None]
  - WEIGHT DECREASED [None]
